FAERS Safety Report 23737690 (Version 1)
Quarter: 2024Q2

REPORT INFORMATION
  Report Type: Spontaneous
  Country: US (occurrence: US)
  Receive Date: 20240412
  Receipt Date: 20240412
  Transmission Date: 20240716
  Serious: Yes (Hospitalization, Other)
  Sender: FDA-Public Use
  Company Number: US-REGENERON PHARMACEUTICALS, INC.-2024-056885

PATIENT
  Sex: Male

DRUGS (1)
  1. EVKEEZA [Suspect]
     Active Substance: EVINACUMAB-DGNB
     Indication: Hypercholesterolaemia
     Dosage: UNK

REACTIONS (6)
  - Sepsis [Unknown]
  - Cellulitis [Unknown]
  - Fall [Unknown]
  - Blood glucose abnormal [Unknown]
  - Influenza like illness [Unknown]
  - Pyrexia [Unknown]
